FAERS Safety Report 8522210-4 (Version None)
Quarter: 2012Q3

REPORT INFORMATION
  Report Type: 
  Country: None (occurrence: None)
  Receive Date: 20120719
  Receipt Date: 20120705
  Transmission Date: 20120928
  Serious: Yes (Hospitalization)
  Sender: FDA-Public Use
  Company Number: US-ELI_LILLY_AND_COMPANY-US201207002200

PATIENT
  Age: 55 Year
  Sex: Female

DRUGS (8)
  1. CYMBALTA [Suspect]
     Dosage: 30 MG, BID
  2. IBUPROFEN [Concomitant]
  3. CYMBALTA [Suspect]
     Dosage: 60 MG, QD
  4. KLONOPIN [Concomitant]
  5. VALIUM [Concomitant]
     Indication: MUSCLE SPASMS
  6. CYMBALTA [Suspect]
     Dosage: 60 MG, BID
  7. CYMBALTA [Suspect]
     Indication: TRIGEMINAL NEURALGIA
     Dosage: 30 MG, QD
  8. OXYCONTIN [Concomitant]
     Indication: PAIN

REACTIONS (7)
  - PERIPHERAL NERVE DECOMPRESSION [None]
  - OFF LABEL USE [None]
  - DISCOMFORT [None]
  - ROAD TRAFFIC ACCIDENT [None]
  - HEADACHE [None]
  - INSOMNIA [None]
  - NIGHTMARE [None]
